FAERS Safety Report 18318362 (Version 1)
Quarter: 2020Q3

REPORT INFORMATION
  Report Type: Spontaneous
  Country: US (occurrence: US)
  Receive Date: 20200926
  Receipt Date: 20200926
  Transmission Date: 20201103
  Serious: No
  Sender: FDA-Public Use
  Company Number: None

PATIENT
  Age: 43 Year
  Sex: Male
  Weight: 90.45 kg

DRUGS (17)
  1. TUMERIC [Concomitant]
     Active Substance: HERBALS\TURMERIC
  2. MONOLAURIN [Concomitant]
  3. MORONONG COMPLETE [Concomitant]
  4. VITAMIN C [Concomitant]
     Active Substance: ASCORBIC ACID
  5. VITAMIN D [Concomitant]
     Active Substance: VITAMIN D NOS
  6. POTASSIUM [Concomitant]
     Active Substance: POTASSIUM
  7. KAPPARREST [Concomitant]
  8. TAMSULOSIN [Suspect]
     Active Substance: TAMSULOSIN
     Indication: DYSURIA
     Dosage: ?          QUANTITY:1 CAPSULE(S);?
     Route: 048
  9. ECGC [Concomitant]
  10. MELATONIN [Concomitant]
     Active Substance: MELATONIN
  11. FISH OIL [Concomitant]
     Active Substance: FISH OIL
  12. ADVIL [Concomitant]
     Active Substance: IBUPROFEN
  13. MAGNESIUM [Concomitant]
     Active Substance: MAGNESIUM
  14. ZINC. [Concomitant]
     Active Substance: ZINC
  15. ZINC SUPREME [Concomitant]
  16. VITAMIN B [Concomitant]
     Active Substance: VITAMIN B
  17. RELAXMAX [Concomitant]

REACTIONS (8)
  - Anxiety [None]
  - Heart rate decreased [None]
  - Hyperhidrosis [None]
  - Chills [None]
  - Hypotension [None]
  - Discomfort [None]
  - Dizziness [None]
  - Loss of consciousness [None]

NARRATIVE: CASE EVENT DATE: 20200926
